FAERS Safety Report 9717659 (Version 2)
Quarter: 2013Q4

REPORT INFORMATION
  Report Type: Spontaneous
  Country: US (occurrence: None)
  Receive Date: 20131125
  Receipt Date: 20131216
  Transmission Date: 20140711
  Serious: Yes (Other)
  Sender: FDA-Public Use
  Company Number: 2013P1021158

PATIENT
  Age: 14 Year
  Sex: Male

DRUGS (2)
  1. MYORISAN [Suspect]
     Indication: ACNE
     Dates: start: 20130831
  2. MYORISAN [Suspect]
     Indication: ACNE CYSTIC
     Dates: start: 20130831

REACTIONS (1)
  - Depression [None]
